FAERS Safety Report 20828062 (Version 1)
Quarter: 2022Q2

REPORT INFORMATION
  Report Type: Spontaneous
  Country: US (occurrence: US)
  Receive Date: 20220513
  Receipt Date: 20220513
  Transmission Date: 20220720
  Serious: No
  Sender: FDA-Public Use
  Company Number: US-SA-SAC20220506001266

PATIENT
  Age: 57 Year
  Sex: Female

DRUGS (5)
  1. DUPIXENT [Suspect]
     Active Substance: DUPILUMAB
     Indication: Dermatitis atopic
     Dosage: 300 MG, QOW
     Route: 058
     Dates: start: 20210220
  2. ARMOUR THYROID [Concomitant]
     Active Substance: THYROID, PORCINE
  3. CLOBETASOL [Concomitant]
     Active Substance: CLOBETASOL
  4. ESZOPICLONE [Concomitant]
     Active Substance: ESZOPICLONE
  5. PROGESTERONE [Concomitant]
     Active Substance: PROGESTERONE

REACTIONS (2)
  - Insomnia [Unknown]
  - Dermatitis atopic [Unknown]
